FAERS Safety Report 26112407 (Version 1)
Quarter: 2025Q4

REPORT INFORMATION
  Report Type: Report from Study
  Country: US (occurrence: US)
  Receive Date: 20251202
  Receipt Date: 20251202
  Transmission Date: 20260118
  Serious: Yes (Other)
  Sender: ROCHE
  Company Number: US-ROCHE-3523296

PATIENT
  Age: 86 Year
  Sex: Female

DRUGS (2)
  1. ACTEMRA [Suspect]
     Active Substance: TOCILIZUMAB
     Indication: Rheumatoid arthritis
     Route: 058
  2. ACTEMRA [Suspect]
     Active Substance: TOCILIZUMAB
     Indication: Rheumatoid arthritis

REACTIONS (6)
  - Kidney infection [Unknown]
  - Urinary tract infection [Unknown]
  - Escherichia infection [Unknown]
  - Clostridium difficile infection [Unknown]
  - Sepsis [Unknown]
  - Haematological infection [Unknown]
